FAERS Safety Report 7028226-1 (Version None)
Quarter: 2010Q4

REPORT INFORMATION
  Report Type: 
  Country: None (occurrence: None)
  Receive Date: 20101005
  Receipt Date: 20100928
  Transmission Date: 20110411
  Serious: Yes (Other)
  Sender: FDA-Public Use
  Company Number: US-JNJCH-2010022335

PATIENT
  Age: 31 Year
  Sex: Female
  Weight: 63.5 kg

DRUGS (1)
  1. NEOSPORIN [Suspect]
     Indication: SKIN DISORDER
     Dosage: TEXT:^SMALL AMOUNT^ TWO TIMES
     Route: 061
     Dates: start: 20100901, end: 20100902

REACTIONS (1)
  - CHEMICAL INJURY [None]
